FAERS Safety Report 9537111 (Version 2)
Quarter: 2014Q1

REPORT INFORMATION
  Report Type: Report from Study
  Country: DE (occurrence: TR)
  Receive Date: 20130919
  Receipt Date: 20140108
  Transmission Date: 20141002
  Serious: Yes (Death)
  Sender: FDA-Public Use
  Company Number: DE-ACTELION-A-US2013-88693

PATIENT
  Age: 70 Year
  Sex: Male

DRUGS (8)
  1. VENTAVIS [Suspect]
     Indication: PULMONARY HYPERTENSION
     Dosage: 6 TIMES A DAY
     Route: 055
     Dates: start: 20120508, end: 20130905
  2. FORASEQ [Concomitant]
  3. SPIRIVA [Concomitant]
     Dosage: 18 MCG, UNK
  4. DILATREND [Concomitant]
     Dosage: 6.25 MG, UNK
  5. ALDACTAZIDE A [Concomitant]
  6. COVERSYL PLUS [Concomitant]
  7. GLIMAX [Concomitant]
     Dosage: 1 MG, UNK
  8. LASIX [Concomitant]

REACTIONS (5)
  - Death [Fatal]
  - General physical health deterioration [Unknown]
  - Lip injury [Unknown]
  - Traumatic haematoma [Unknown]
  - Local swelling [Unknown]
